FAERS Safety Report 10149405 (Version 1)
Quarter: 2014Q2

REPORT INFORMATION
  Report Type: Spontaneous
  Country: US (occurrence: None)
  Receive Date: 20140501
  Receipt Date: 20140501
  Transmission Date: 20141212
  Serious: Yes (Death)
  Sender: FDA-Public Use
  Company Number: None

PATIENT
  Age: 82 Year
  Sex: Female
  Weight: 56.7 kg

DRUGS (1)
  1. FUROSEMIDE [Suspect]
     Indication: OEDEMA PERIPHERAL
     Dosage: 1 A DAIL, ONCE DAILY, TAKEN BY MOUTH
     Route: 048
     Dates: start: 20140402, end: 20140403

REACTIONS (8)
  - Chest pain [None]
  - Urinary retention [None]
  - Asthenia [None]
  - Dizziness [None]
  - Decreased appetite [None]
  - Nausea [None]
  - Myocardial rupture [None]
  - Fluid retention [None]
